FAERS Safety Report 21054737 (Version 14)
Quarter: 2023Q4

REPORT INFORMATION
  Report Type: Report from Study
  Country: FI (occurrence: FI)
  Receive Date: 20220707
  Receipt Date: 20231116
  Transmission Date: 20240110
  Serious: Yes (Death, Life-Threatening, Hospitalization, Disabling, Other)
  Sender: FDA-Public Use
  Company Number: FI-BRISTOL-MYERS SQUIBB COMPANY-2022-069717

PATIENT
  Age: 64 Year
  Sex: Male
  Weight: 86 kg

DRUGS (16)
  1. ENOXAPARIN [Concomitant]
     Active Substance: ENOXAPARIN
     Indication: Prophylaxis
     Dosage: LAST DOSE ON 27-JUL-2022
     Route: 058
     Dates: start: 20220704, end: 20220704
  2. ENOXAPARIN [Concomitant]
     Active Substance: ENOXAPARIN
     Route: 058
     Dates: start: 20220705, end: 20220710
  3. ENOXAPARIN [Concomitant]
     Active Substance: ENOXAPARIN
     Route: 058
     Dates: start: 20220711, end: 20220722
  4. ENOXAPARIN [Concomitant]
     Active Substance: ENOXAPARIN
     Route: 058
     Dates: start: 20220723, end: 20220723
  5. CARVEDILOL [Concomitant]
     Active Substance: CARVEDILOL
     Indication: Product used for unknown indication
     Route: 048
     Dates: start: 20180823, end: 20220704
  6. CARVEDILOL [Concomitant]
     Active Substance: CARVEDILOL
  7. ACETAMINOPHEN [Concomitant]
     Active Substance: ACETAMINOPHEN
     Indication: Product used for unknown indication
     Dosage: FREQUENCY - AS NEEDED
     Route: 048
     Dates: start: 20220609
  8. IBUPROFEN [Concomitant]
     Active Substance: IBUPROFEN
     Indication: Product used for unknown indication
     Dosage: FREQUENCY -  AS NEEDED
     Route: 048
     Dates: start: 20220314, end: 20220704
  9. HYDROCHLOROTHIAZIDE\TELMISARTAN [Concomitant]
     Active Substance: HYDROCHLOROTHIAZIDE\TELMISARTAN
     Indication: Product used for unknown indication
     Dosage: MICARDIS PLUS (TELMISARTAN 80 MG / HYDROCHLOROTHIAZIDE 25 MG)? 1 UNIT NOS
     Route: 048
     Dates: start: 20220607, end: 20220704
  10. DUTASTERIDE [Concomitant]
     Active Substance: DUTASTERIDE
     Indication: Product used for unknown indication
     Route: 048
     Dates: start: 20201218, end: 20220704
  11. INSULIN ASPART [Concomitant]
     Active Substance: INSULIN ASPART
     Indication: Hyperglycaemia
     Dosage: 7 UNITS NOS
     Route: 058
     Dates: start: 20220706
  12. PANTOPRAZOLE [Concomitant]
     Active Substance: PANTOPRAZOLE
     Indication: Product used for unknown indication
     Dosage: LAST DOSE ON 22-JUL-2022
     Route: 048
     Dates: start: 20220705
  13. OXAZEPAM [Concomitant]
     Active Substance: OXAZEPAM
     Indication: Product used for unknown indication
     Dosage: FREQUENCY -  AS NEEDED
     Route: 048
     Dates: start: 20220715
  14. PFIZER-BIONTECH COVID-19 VACCINE [Concomitant]
     Active Substance: TOZINAMERAN
     Indication: Product used for unknown indication
     Dates: start: 20210514
  15. PFIZER-BIONTECH COVID-19 VACCINE [Concomitant]
     Active Substance: TOZINAMERAN
     Dates: start: 20210803
  16. PFIZER-BIONTECH COVID-19 VACCINE [Concomitant]
     Active Substance: TOZINAMERAN
     Dates: start: 20220112

REACTIONS (5)
  - Autoimmune myositis [Fatal]
  - Autoimmune myocarditis [Fatal]
  - Hepatitis [Recovered/Resolved with Sequelae]
  - Anal fistula [Not Recovered/Not Resolved]
  - Atrial fibrillation [Not Recovered/Not Resolved]

NARRATIVE: CASE EVENT DATE: 20220704
